FAERS Safety Report 8450257-5 (Version None)
Quarter: 2012Q2

REPORT INFORMATION
  Report Type: 
  Country: None (occurrence: None)
  Receive Date: 20120613
  Receipt Date: 20120601
  Transmission Date: 20120825
  Serious: Yes (Death, Hospitalization, Other)
  Sender: FDA-Public Use
  Company Number: 09-AUR-10333

PATIENT
  Age: 69 Year
  Sex: Male
  Weight: 90 kg

DRUGS (12)
  1. ASPIRIN [Concomitant]
  2. FUROSEMIDE [Concomitant]
  3. SPIRONOLACTONE [Concomitant]
  4. METFFORMIN HYDROCHLORIDE [Suspect]
     Indication: DIABETES MELLITUS
     Dosage: 2000 MG (1000 MG, 2 IN 1 D), ORAL
     Route: 048
     Dates: start: 20090201, end: 20090512
  5. QUETIAPINE FUMARATE [Concomitant]
  6. GLICLAZIDE (GLICLAZIDE) [Concomitant]
  7. REPAGLINIDE [Concomitant]
  8. RAMIPRIL [Concomitant]
  9. FERROUS SULFATE TAB [Concomitant]
  10. SIMVASTATIN [Concomitant]
  11. ACETAMINOPHEN [Concomitant]
  12. DOCUSATE (DOCUSATE) [Concomitant]

REACTIONS (22)
  - INTESTINAL ISCHAEMIA [None]
  - VENTRICULAR TACHYCARDIA [None]
  - PNEUMONIA [None]
  - GENERAL PHYSICAL HEALTH DETERIORATION [None]
  - DEHYDRATION [None]
  - HALLUCINATION [None]
  - PSYCHOTIC DISORDER [None]
  - BLOOD PRESSURE INCREASED [None]
  - ACIDOSIS [None]
  - DISORIENTATION [None]
  - RENAL FAILURE ACUTE [None]
  - LEFT VENTRICULAR FAILURE [None]
  - METABOLIC FUNCTION TEST ABNORMAL [None]
  - BODY TEMPERATURE DECREASED [None]
  - BLOOD LACTIC ACID INCREASED [None]
  - PARANOIA [None]
  - SOMNOLENCE [None]
  - CARDIAC FAILURE CONGESTIVE [None]
  - BLOOD GLUCOSE DECREASED [None]
  - BLOOD GLUCOSE INCREASED [None]
  - NEUTROPHIL COUNT DECREASED [None]
  - HYPOTHERMIA [None]
